FAERS Safety Report 4347442-0 (Version None)
Quarter: 2004Q1

REPORT INFORMATION
  Report Type: 
  Country: None (occurrence: None)
  Receive Date: 20040319
  Receipt Date: 20031201
  Transmission Date: 20041129
  Serious: No
  Sender: FDA-Public Use
  Company Number: US-JNJFOC-20031200988

PATIENT
  Age: 17 Year
  Sex: Female
  Weight: 55.3388 kg

DRUGS (6)
  1. ORTHO EVRA [Suspect]
     Indication: CONTRACEPTION
     Dosage: 1 DOSE (S), 3 IN 4 WEEK, TRANSDERMAL
     Route: 062
     Dates: start: 20031117
  2. ZANAX (ALPRAZOLAM) [Concomitant]
  3. PAXIL [Concomitant]
  4. TRILEPTAL [Concomitant]
  5. ALBUTEROL [Concomitant]
  6. NEBULIZER (OTHER RESPIRATORY SYSTEM PRODUCTS) [Concomitant]

REACTIONS (1)
  - APPLICATION SITE REACTION [None]
